FAERS Safety Report 14079966 (Version 5)
Quarter: 2018Q1

REPORT INFORMATION
  Report Type: Report from Study
  Country: PL (occurrence: PL)
  Receive Date: 20171012
  Receipt Date: 20180222
  Transmission Date: 20180508
  Serious: Yes (Death, Hospitalization)
  Sender: FDA-Public Use
  Company Number: PL-EISAI MEDICAL RESEARCH-EC-2015-009129

PATIENT
  Age: 65 Year
  Sex: Male
  Weight: 57 kg

DRUGS (2)
  1. APIDRA [Concomitant]
     Active Substance: INSULIN GLULISINE
  2. LENVATINIB [Suspect]
     Active Substance: LENVATINIB
     Indication: HEPATOCELLULAR CARCINOMA
     Route: 048
     Dates: start: 20140624, end: 20171001

REACTIONS (2)
  - Cholelithiasis [Fatal]
  - Tuberculosis [Recovered/Resolved]

NARRATIVE: CASE EVENT DATE: 20150526
